FAERS Safety Report 11822443 (Version 1)
Quarter: 2015Q4

REPORT INFORMATION
  Report Type: Spontaneous
  Country: US (occurrence: US)
  Receive Date: 20151210
  Receipt Date: 20151210
  Transmission Date: 20160305
  Serious: Yes (Death)
  Sender: FDA-Public Use
  Company Number: US-JNJFOC-20150516687

PATIENT
  Sex: Female
  Weight: 55 kg

DRUGS (4)
  1. IMBRUVICA [Suspect]
     Active Substance: IBRUTINIB
     Indication: CHRONIC LYMPHOCYTIC LEUKAEMIA
     Route: 048
     Dates: start: 20141210, end: 20150106
  2. ASPIRIN. [Concomitant]
     Active Substance: ASPIRIN
     Dates: end: 20150430
  3. MULTIVITAMINS [Concomitant]
     Active Substance: VITAMINS
     Dates: end: 20150430
  4. IMBRUVICA [Suspect]
     Active Substance: IBRUTINIB
     Indication: CHRONIC LYMPHOCYTIC LEUKAEMIA
     Route: 048
     Dates: start: 20150107, end: 20150430

REACTIONS (3)
  - Disease progression [Fatal]
  - Hypogammaglobulinaemia [Unknown]
  - Upper respiratory tract infection [Unknown]

NARRATIVE: CASE EVENT DATE: 2015
